FAERS Safety Report 8021813-3 (Version None)
Quarter: 2011Q4

REPORT INFORMATION
  Report Type: 
  Country: None (occurrence: None)
  Receive Date: 20111230
  Receipt Date: 20111215
  Transmission Date: 20120403
  Serious: Yes (Hospitalization)
  Sender: FDA-Public Use
  Company Number: 1000026057

PATIENT
  Age: 79 Year
  Sex: Male

DRUGS (25)
  1. SEPAMIT-R (NIFEDIPINE) (NIFEDIPINE) [Concomitant]
  2. PANTOSIN (PANTETHINE) (PANTETHINE) [Concomitant]
  3. TRIFLUID (GLUCOSE, FRUCTOSE, XYLITOL, SODIUM ACETATE, SODIUM CHLORIDE, [Concomitant]
  4. MEMANTINE HYDROCHLORIDE [Suspect]
     Indication: DEMENTIA ALZHEIMER'S TYPE
     Dosage: 10 MG (10 MG, 1 IN 1 D), ORAL
     Route: 048
     Dates: start: 20111005, end: 20111011
  5. ENSURE LIQUID (VITAMINS NOS, MINERALS NOS, AMINO ACIDS NOS) (VITAMINS [Concomitant]
  6. TWINPAL (GLUCOSE, CYSTEINE, AMINOACETIC ACID, ALANINE SERINE, ASPARTIC [Concomitant]
  7. KYLIT (XYLITOL) (XYLITOL) [Concomitant]
  8. SOLYUGEN F (GLUCOSE, SODIUM ACETATE, POTASSIUM CHLORIDE, CALCIUM CHLOR [Concomitant]
  9. LASIX [Concomitant]
  10. GARENOXACIN MESYLATE [Suspect]
     Indication: PNEUMONIA
     Dosage: 400 MG (400 MG, 1 IN 1 D), PR
     Route: 051
     Dates: start: 20111005, end: 20111011
  11. RESLIN (TRAZODONE HYDROCHLORIDE) (TRAZODONE HYDROCHLORIDE) [Concomitant]
  12. SODIUM CHLORIDE (SODIUM CHLORIDE) (SODIUM CHLORIDE) [Concomitant]
  13. MEMANTINE HYDROCHLORIDE [Suspect]
     Indication: DEMENTIA ALZHEIMER'S TYPE
     Dosage: 5 MG (5 MG, 1 IN 1 D), ORAL
     Route: 048
     Dates: start: 20110928, end: 20111004
  14. VANCOMYCIN HYDROCHLORIDE [Suspect]
     Indication: PNEUMONIA STAPHYLOCOCCAL
     Dosage: 2000 MG (500 MG, 4 IN 1 D), ORAL
     Route: 048
     Dates: start: 20111006, end: 20111012
  15. LAC-B N (LACTOBACILLUS BIFIDUS, LYOPHILIZED) (LACTOBACILLUS BIFIDUS, L [Concomitant]
  16. LASIX [Concomitant]
  17. LOPEMIN (LOPERAMIDE HYDROCHLORIDE) (LOPERAMIDE HYDROCHLORIDE) [Concomitant]
  18. ALBUMIN (ALBUMIN) (ALBUMIN) [Concomitant]
  19. FOSMICIN (FOSFOMYCIN CALCIUM) (FOSFOMYCIN CALCIUM) [Concomitant]
  20. MIYA BM (CLOSTRIDIUM BUTYRICUM) (CLOSTRIDIUM BUTYRICUM) [Concomitant]
  21. SUBVITAN (ASCORBIC ACID, THIAMINE HYDROCHLORIDE, RIBOFLAVIN SODIUM PHO [Concomitant]
  22. URSO (URSODEOXYCHOLIC ACID) (URSODEOXYCHOLIC ACID) [Concomitant]
  23. BLOPRESS (CANDESARTAN CILEXETIL) (CANDESARTAN CILEXETIL) [Concomitant]
  24. DEPAKENE [Concomitant]
  25. ARICEPT D (DONEPEZIL HYDROCHLORIDE) (DONEPEZIL HYDROCHLORIDE) [Concomitant]

REACTIONS (13)
  - ANTIBIOTIC RESISTANT STAPHYLOCOCCUS TEST POSITIVE [None]
  - THERAPEUTIC RESPONSE DECREASED [None]
  - WHITE BLOOD CELLS URINE POSITIVE [None]
  - GLUCOSE URINE PRESENT [None]
  - DIARRHOEA [None]
  - PROTEIN URINE PRESENT [None]
  - ALANINE AMINOTRANSFERASE INCREASED [None]
  - LYMPHOCYTE STIMULATION TEST POSITIVE [None]
  - PNEUMONIA STAPHYLOCOCCAL [None]
  - BLOOD URINE PRESENT [None]
  - ASPARTATE AMINOTRANSFERASE INCREASED [None]
  - HEPATIC FUNCTION ABNORMAL [None]
  - RENAL IMPAIRMENT [None]
